FAERS Safety Report 9972766 (Version 1)
Quarter: 2014Q1

REPORT INFORMATION
  Report Type: Spontaneous
  Country: US (occurrence: None)
  Receive Date: 20140127
  Receipt Date: 20140127
  Transmission Date: 20141002
  Serious: Yes (Other)
  Sender: FDA-Public Use
  Company Number: 1298801

PATIENT
  Sex: Female

DRUGS (4)
  1. RITUXAN [Suspect]
     Indication: GRANULOMATOSIS WITH POLYANGIITIS
     Dosage: (750 MG), UNKNOWN
  2. DRAMAMINE (DIMENHYDRINATE) [Concomitant]
  3. SOLU-MEDROL (METHYLPREDNISOLONE SODIUM SUCCINATE) [Concomitant]
  4. TYLENOL (PARACETAMOL) [Concomitant]

REACTIONS (3)
  - Rash generalised [None]
  - Swollen tongue [None]
  - Ear pruritus [None]
